FAERS Safety Report 21950577 (Version 1)
Quarter: 2023Q1

REPORT INFORMATION
  Report Type: Report from Study
  Country: US (occurrence: US)
  Receive Date: 20230203
  Receipt Date: 20230203
  Transmission Date: 20230417
  Serious: Yes (Death, Other)
  Sender: FDA-Public Use
  Company Number: US-TAKEDA-2023TUS012092

PATIENT
  Sex: Male

DRUGS (1)
  1. MOBOCERTINIB [Suspect]
     Active Substance: MOBOCERTINIB
     Indication: Head and neck cancer
     Dosage: UNK UNK, QD
     Route: 065
     Dates: start: 20221118

REACTIONS (2)
  - Death [Fatal]
  - Product use in unapproved indication [Unknown]
